FAERS Safety Report 9813948 (Version 2)
Quarter: 2014Q1

REPORT INFORMATION
  Report Type: Report from Study
  Country: FR (occurrence: FR)
  Receive Date: 20140113
  Receipt Date: 20140113
  Transmission Date: 20141002
  Serious: Yes (Other)
  Sender: FDA-Public Use
  Company Number: PHHY2013FR123502

PATIENT
  Age: 82 Year
  Sex: Female

DRUGS (8)
  1. ACLASTA/ZOLEDRONATE [Suspect]
     Indication: OSTEOPOROSIS
     Dosage: UNK
     Route: 042
     Dates: start: 20110615
  2. POLY-KARAYA [Concomitant]
     Dosage: UNK UKN, UNK
     Dates: start: 2000, end: 2011
  3. KARDEGIC [Concomitant]
     Dosage: UNK UKN, UNK
     Dates: start: 2011
  4. COVERSYL [Concomitant]
     Dosage: UNK UKN, UNK
     Dates: start: 2011, end: 201201
  5. FLUDEX [Concomitant]
     Dosage: UNK UKN, UNK
     Dates: start: 2011, end: 201201
  6. CORDARONE [Concomitant]
     Dosage: UNK UKN, UNK
     Dates: start: 2012
  7. TOPAAL [Concomitant]
     Dosage: UNK UKN, UNK
     Dates: start: 2012, end: 2012
  8. MOPRAL [Concomitant]
     Dosage: UNK UKN, UNK
     Dates: start: 2012

REACTIONS (1)
  - Extrasystoles [Recovering/Resolving]
